FAERS Safety Report 13384774 (Version 2)
Quarter: 2017Q2

REPORT INFORMATION
  Report Type: Report from Study
  Country: US (occurrence: US)
  Receive Date: 20170329
  Receipt Date: 20170420
  Transmission Date: 20170830
  Serious: Yes (Hospitalization)
  Sender: FDA-Public Use
  Company Number: US-ACTELION-A-US2017-151424

PATIENT
  Age: 78 Year
  Sex: Male

DRUGS (4)
  1. PROTONIX [Concomitant]
     Active Substance: PANTOPRAZOLE SODIUM
  2. NORVASC [Concomitant]
     Active Substance: AMLODIPINE BESYLATE
  3. OPSUMIT [Suspect]
     Active Substance: MACITENTAN
     Indication: PULMONARY ARTERIAL HYPERTENSION
     Dosage: 10 MG, UNK
     Route: 048
  4. BUMEX [Concomitant]
     Active Substance: BUMETANIDE

REACTIONS (10)
  - Oedema [Unknown]
  - Lung disorder [Unknown]
  - Dry throat [Unknown]
  - Fluid retention [Unknown]
  - Nasal dryness [Unknown]
  - Renal disorder [Unknown]
  - Liver disorder [Unknown]
  - Cardiac disorder [Unknown]
  - Peripheral swelling [Recovered/Resolved]
  - Walking disability [Unknown]
